APPROVED DRUG PRODUCT: METRONIDAZOLE
Active Ingredient: METRONIDAZOLE
Strength: 125MG
Dosage Form/Route: TABLET;ORAL
Application: A070772 | Product #003
Applicant: INNOGENIX LLC
Approved: Oct 29, 2024 | RLD: No | RS: No | Type: RX